FAERS Safety Report 11984641 (Version 2)
Quarter: 2016Q1

REPORT INFORMATION
  Report Type: Spontaneous
  Country: US (occurrence: US)
  Receive Date: 20160201
  Receipt Date: 20160311
  Transmission Date: 20160526
  Serious: No
  Sender: FDA-Public Use
  Company Number: US-GLAXOSMITHKLINE-US2016GSK011093

PATIENT
  Age: 65 Year
  Sex: Female

DRUGS (1)
  1. TANZEUM [Suspect]
     Active Substance: ALBIGLUTIDE
     Indication: TYPE 2 DIABETES MELLITUS
     Dosage: 30 MG, WE ( 6 INJECTIONS)
     Dates: start: 201512

REACTIONS (6)
  - Visual impairment [Unknown]
  - Oropharyngeal pain [Unknown]
  - Rhinorrhoea [Unknown]
  - Headache [Unknown]
  - Migraine [Unknown]
  - Toothache [Unknown]

NARRATIVE: CASE EVENT DATE: 201601
